FAERS Safety Report 21113420 (Version 1)
Quarter: 2022Q3

REPORT INFORMATION
  Report Type: Spontaneous
  Country: FR (occurrence: FR)
  Receive Date: 20220721
  Receipt Date: 20220721
  Transmission Date: 20221026
  Serious: Yes (Hospitalization, Other)
  Sender: FDA-Public Use
  Company Number: None

PATIENT
  Age: 49 Year
  Sex: Male
  Weight: 63 kg

DRUGS (3)
  1. ONDANSETRON [Suspect]
     Active Substance: ONDANSETRON
     Indication: Uterine leiomyosarcoma
     Route: 042
     Dates: start: 20220603, end: 20220603
  2. GEMCITABINE\GEMCITABINE HYDROCHLORIDE [Suspect]
     Active Substance: GEMCITABINE\GEMCITABINE HYDROCHLORIDE
     Indication: Uterine leiomyosarcoma
     Route: 042
     Dates: start: 20220603, end: 20220603
  3. DACARBAZINE [Suspect]
     Active Substance: DACARBAZINE
     Indication: Uterine leiomyosarcoma
     Route: 042
     Dates: start: 20220603, end: 20220603

REACTIONS (1)
  - Anaphylactic reaction [Recovered/Resolved]

NARRATIVE: CASE EVENT DATE: 20220603
